FAERS Safety Report 25095800 (Version 1)
Quarter: 2025Q1

REPORT INFORMATION
  Report Type: Spontaneous
  Country: DE (occurrence: DE)
  Receive Date: 20250319
  Receipt Date: 20250319
  Transmission Date: 20250409
  Serious: Yes (Hospitalization, Other)
  Sender: ALEXION PHARMACEUTICALS
  Company Number: DE-SANOFI-02435736

PATIENT
  Weight: 4.6 kg

DRUGS (1)
  1. BEYFORTUS [Suspect]
     Active Substance: NIRSEVIMAB-ALIP
     Dosage: 50 MILLIGRAM, QD
     Route: 065

REACTIONS (1)
  - Respiratory syncytial virus bronchiolitis [Unknown]
